FAERS Safety Report 4994822-6 (Version None)
Quarter: 2006Q2

REPORT INFORMATION
  Report Type: 
  Country: None (occurrence: None)
  Receive Date: 20060508
  Receipt Date: 20050926
  Transmission Date: 20061013
  Serious: Yes (Other)
  Sender: FDA-Public Use
  Company Number: PHEH2005US10700

PATIENT
  Age: 64 Year
  Sex: Male
  Weight: 88.435 kg

DRUGS (6)
  1. AREDIA [Suspect]
  2. ZOMETA [Suspect]
  3. THALIDOMIDE [Concomitant]
     Dosage: 200 MG, UNK
  4. NEURONTIN [Concomitant]
     Dosage: 1800 MG, UNK
  5. PAROXETINE [Concomitant]
     Dosage: 20 MG, UNK
  6. ASPIRIN [Concomitant]

REACTIONS (9)
  - ALPHA HAEMOLYTIC STREPTOCOCCAL INFECTION [None]
  - BONE DEBRIDEMENT [None]
  - BONE DISORDER [None]
  - DIALYSIS [None]
  - EXCESSIVE GRANULATION TISSUE [None]
  - HYPOAESTHESIA ORAL [None]
  - MASTICATION DISORDER [None]
  - OSTEOMYELITIS [None]
  - PARAESTHESIA ORAL [None]
